FAERS Safety Report 5754007-2 (Version None)
Quarter: 2008Q2

REPORT INFORMATION
  Report Type: 
  Country: None (occurrence: None)
  Receive Date: 20080527
  Receipt Date: 20080527
  Transmission Date: 20081010
  Serious: Yes (Other)
  Sender: FDA-Public Use
  Company Number: None

PATIENT
  Age: 58 Year
  Sex: Male
  Weight: 97.5234 kg

DRUGS (1)
  1. LEVAQUIN [Suspect]
     Indication: EPIDIDYMITIS
     Dosage: ONE CAPSULE DAILY PO
     Route: 048
     Dates: start: 20071107, end: 20071111

REACTIONS (2)
  - ARTHRALGIA [None]
  - GAIT DISTURBANCE [None]
